FAERS Safety Report 9162912 (Version 1)
Quarter: 2013Q1

REPORT INFORMATION
  Report Type: Spontaneous
  Country: US (occurrence: US)
  Receive Date: 20130314
  Receipt Date: 20130314
  Transmission Date: 20140127
  Serious: No
  Sender: FDA-Public Use
  Company Number: US-BAYER-2013-022281

PATIENT
  Age: 65 Year
  Sex: Male

DRUGS (9)
  1. LEVITRA [Suspect]
     Indication: ERECTILE DYSFUNCTION
     Dosage: 1 DF, QD
     Route: 048
  2. BLOOD PRESSURE MEDICATION [Concomitant]
  3. LEVOTHYROXINE [Concomitant]
  4. OMEPRAZOLE [Concomitant]
     Indication: GASTROOESOPHAGEAL REFLUX DISEASE
  5. DIOVAN [Concomitant]
  6. ZANIPRIL [Concomitant]
  7. FISH OIL [Concomitant]
  8. CENTRUM SILVER [Concomitant]
  9. SAW PALMETTO [Concomitant]

REACTIONS (2)
  - Drug ineffective [Not Recovered/Not Resolved]
  - Drug ineffective [Not Recovered/Not Resolved]
